FAERS Safety Report 6446934-8 (Version None)
Quarter: 2009Q4

REPORT INFORMATION
  Report Type: 
  Country: None (occurrence: None)
  Receive Date: 20091119
  Receipt Date: 20091110
  Transmission Date: 20100525
  Serious: Yes (Hospitalization)
  Sender: FDA-Public Use
  Company Number: GB-MERCK-0902USA01722

PATIENT
  Age: 43 Year
  Sex: Female
  Weight: 164 kg

DRUGS (24)
  1. PRINIVIL [Suspect]
     Route: 048
     Dates: end: 20081013
  2. IRBESARTAN [Suspect]
     Route: 048
     Dates: end: 20081013
  3. ASPIRIN [Concomitant]
     Indication: CARDIAC DISORDER
     Route: 048
  4. OMEPRAZOLE [Concomitant]
     Route: 048
  5. FUROSEMIDE [Concomitant]
     Route: 048
  6. ACETAMINOPHEN [Suspect]
     Indication: MUSCLE SPASMS
     Route: 048
  7. ACOMPLIA [Suspect]
     Indication: OBESITY
     Route: 048
     Dates: start: 20070629, end: 20081013
  8. SPIRONOLACTONE [Suspect]
     Route: 048
     Dates: end: 20081013
  9. CODEINE [Suspect]
     Indication: MUSCLE SPASMS
     Route: 065
  10. ISOSORBIDE MONONITRATE [Concomitant]
     Route: 048
  11. PSYLLIUM HUSK [Concomitant]
     Route: 048
  12. VESICARE [Concomitant]
     Indication: BLADDER DISORDER
     Route: 065
  13. NITROGLYCERIN [Concomitant]
     Indication: CARDIAC DISORDER
     Route: 060
  14. ATENOLOL [Concomitant]
     Route: 048
  15. QUININE SULFATE [Concomitant]
     Route: 048
  16. TRIMETHOPRIM [Concomitant]
     Indication: URINARY TRACT INFECTION
     Route: 048
  17. NITRAZEPAM [Concomitant]
     Route: 048
  18. OMACOR [Concomitant]
     Route: 048
  19. LIDOCAINE [Concomitant]
     Route: 061
  20. ATORVASTATIN [Concomitant]
     Route: 048
  21. BISOPROLOL FUMARATE [Concomitant]
     Route: 065
  22. DILTIAZEM HYDROCHLORIDE [Concomitant]
     Route: 065
  23. OMEGA-3 MARINE TRIGLYCERIDES [Concomitant]
     Route: 048
  24. SOLIFENACIN SUCCINATE [Concomitant]
     Route: 048

REACTIONS (19)
  - ANAL HAEMORRHAGE [None]
  - ATRIAL FIBRILLATION [None]
  - BACK PAIN [None]
  - CONSTIPATION [None]
  - DEHYDRATION [None]
  - DYSPEPSIA [None]
  - FEAR OF EATING [None]
  - GASTROOESOPHAGEAL REFLUX DISEASE [None]
  - HAEMORRHOIDS [None]
  - HYPERTENSION [None]
  - NAUSEA [None]
  - OEDEMA [None]
  - OLIGURIA [None]
  - PYREXIA [None]
  - RECTAL HAEMORRHAGE [None]
  - RENAL FAILURE ACUTE [None]
  - RENAL PAIN [None]
  - VOMITING [None]
  - WEIGHT INCREASED [None]
